FAERS Safety Report 7866970-4 (Version None)
Quarter: 2011Q4

REPORT INFORMATION
  Report Type: 
  Country: None (occurrence: None)
  Receive Date: 20111028
  Receipt Date: 20111017
  Transmission Date: 20120403
  Serious: Yes (Death)
  Sender: FDA-Public Use
  Company Number: GB-ACTELION-A-CH2011-55580

PATIENT
  Age: 2 Year
  Sex: Male
  Weight: 7.8 kg

DRUGS (1)
  1. ZAVESCA [Suspect]
     Indication: LIPIDOSIS
     Dosage: 100 MG, QD
     Route: 048
     Dates: start: 20070912

REACTIONS (1)
  - LIPIDOSIS [None]
